FAERS Safety Report 11371380 (Version 1)
Quarter: 2015Q3

REPORT INFORMATION
  Report Type: Spontaneous
  Country: SG (occurrence: SG)
  Receive Date: 20150812
  Receipt Date: 20150812
  Transmission Date: 20151125
  Serious: Yes (Other)
  Sender: FDA-Public Use
  Company Number: SG-FRESENIUS KABI-FK201503863

PATIENT
  Age: 50 Year
  Sex: Male

DRUGS (8)
  1. ETHAMBUTOL [Suspect]
     Active Substance: ETHAMBUTOL HYDROCHLORIDE
     Indication: TUBERCULOSIS OF EYE
     Route: 048
  2. ETHAMBUTOL [Suspect]
     Active Substance: ETHAMBUTOL HYDROCHLORIDE
     Indication: UVEITIS
  3. RIFAMPIN (MANUFACTURER UNKNOWN) (RIFAMPIN) (RIFAMPIN) [Suspect]
     Active Substance: RIFAMPIN
     Indication: TUBERCULOSIS OF EYE
     Route: 048
  4. ISONIAZID. [Suspect]
     Active Substance: ISONIAZID
     Indication: TUBERCULOSIS OF EYE
     Route: 048
  5. RIFAMPIN (MANUFACTURER UNKNOWN) (RIFAMPIN) (RIFAMPIN) [Suspect]
     Active Substance: RIFAMPIN
     Indication: UVEITIS
  6. ISONIAZID. [Suspect]
     Active Substance: ISONIAZID
     Indication: UVEITIS
  7. PREDNISOLONE. [Concomitant]
     Active Substance: PREDNISOLONE
     Indication: TUBERCULOSIS OF EYE
     Route: 048
  8. PREDNISOLONE. [Concomitant]
     Active Substance: PREDNISOLONE
     Indication: UVEITIS

REACTIONS (2)
  - Chorioretinitis [Recovering/Resolving]
  - Tuberculosis of eye [Recovering/Resolving]
